FAERS Safety Report 9140466 (Version 1)
Quarter: 2013Q1

REPORT INFORMATION
  Report Type: Report from Study
  Country: VE (occurrence: VE)
  Receive Date: 20130305
  Receipt Date: 20130305
  Transmission Date: 20140127
  Serious: Yes (Other)
  Sender: FDA-Public Use
  Company Number: VE-ABBOTT-13P-178-1056623-00

PATIENT
  Sex: Female
  Weight: 95 kg

DRUGS (2)
  1. HUMIRA [Suspect]
     Indication: PSORIATIC ARTHROPATHY
     Dosage: 1 PREFILLED SYRINGE, EVERY 15 DAYS
     Route: 058
     Dates: start: 20101208
  2. FOLIC [Concomitant]
     Indication: PSORIATIC ARTHROPATHY
     Dosage: 10 MG DAILY, VO
     Dates: start: 201209

REACTIONS (2)
  - Deafness [Not Recovered/Not Resolved]
  - Psoriasis [Not Recovered/Not Resolved]
